FAERS Safety Report 13345055 (Version 1)
Quarter: 2017Q1

REPORT INFORMATION
  Report Type: Spontaneous
  Country: US (occurrence: US)
  Receive Date: 20170317
  Receipt Date: 20170317
  Transmission Date: 20170428
  Serious: Yes (Hospitalization)
  Sender: FDA-Public Use
  Company Number: US-ROCHE-1907910

PATIENT
  Sex: Female
  Weight: 49.94 kg

DRUGS (1)
  1. XOLAIR [Suspect]
     Active Substance: OMALIZUMAB
     Indication: MASTOCYTOSIS
     Dosage: HAD ONE DOSE ;ONGOING: NO
     Route: 065
     Dates: start: 20170310

REACTIONS (1)
  - Anaphylactic shock [Unknown]
